FAERS Safety Report 9349267 (Version 3)
Quarter: 2013Q3

REPORT INFORMATION
  Report Type: Spontaneous
  Country: FR (occurrence: FR)
  Receive Date: 20130614
  Receipt Date: 20130904
  Transmission Date: 20140515
  Serious: Yes (Hospitalization, Other)
  Sender: FDA-Public Use
  Company Number: FR-TEVA-412327ISR

PATIENT
  Age: 79 Year
  Sex: Female
  Weight: 59 kg

DRUGS (10)
  1. FUROSEMIDE TEVA 40 MG [Suspect]
     Indication: HYPERTENSION
     Dosage: 40 MILLIGRAM DAILY; INTAKE OF 14 TABLETS IN TOTAL
     Route: 048
     Dates: start: 20130514, end: 20130606
  2. FUROSEMIDE TEVA 40 MG [Suspect]
     Indication: CARDIAC FAILURE
  3. DUOPLAVIN [Concomitant]
     Route: 048
  4. BISOPROLOL [Concomitant]
     Route: 048
  5. COVERAM [Concomitant]
     Route: 048
  6. METFORMINE [Concomitant]
  7. XELEVIA [Concomitant]
  8. PRAVASTATINE [Concomitant]
  9. PARIET [Concomitant]
  10. DAFALGAN [Concomitant]

REACTIONS (3)
  - Acute pulmonary oedema [Recovered/Resolved]
  - Pollakiuria [Unknown]
  - Fatigue [Unknown]
